FAERS Safety Report 14579408 (Version 3)
Quarter: 2018Q2

REPORT INFORMATION
  Report Type: Report from Study
  Country: US (occurrence: US)
  Receive Date: 20180227
  Receipt Date: 20180620
  Transmission Date: 20180711
  Serious: Yes (Hospitalization)
  Sender: FDA-Public Use
  Company Number: US-ACTELION-A-NJ2018-168181

PATIENT
  Age: 73 Year
  Sex: Male

DRUGS (10)
  1. POTASSIUM CHLORIDE. [Concomitant]
     Active Substance: POTASSIUM CHLORIDE
  2. DILTIAZEM. [Concomitant]
     Active Substance: DILTIAZEM
  3. LEVOTHYROXINE. [Concomitant]
     Active Substance: LEVOTHYROXINE
  4. ALLOPURINOL. [Concomitant]
     Active Substance: ALLOPURINOL
  5. TRACLEER [Suspect]
     Active Substance: BOSENTAN
     Indication: PULMONARY ARTERIAL HYPERTENSION
     Dosage: 125 MG, QD
     Route: 048
     Dates: start: 20180124
  6. SOTALOL HCL [Concomitant]
     Active Substance: SOTALOL
  7. ELIQUIS [Concomitant]
     Active Substance: APIXABAN
  8. TAMSULOSIN [Concomitant]
     Active Substance: TAMSULOSIN
  9. BUMEX [Concomitant]
     Active Substance: BUMETANIDE
  10. ADCIRCA [Concomitant]
     Active Substance: TADALAFIL

REACTIONS (3)
  - Cardiac flutter [Not Recovered/Not Resolved]
  - Cardiac pacemaker insertion [Not Recovered/Not Resolved]
  - Atrial fibrillation [Unknown]

NARRATIVE: CASE EVENT DATE: 201804
